FAERS Safety Report 9130507 (Version 1)
Quarter: 2013Q1

REPORT INFORMATION
  Report Type: Spontaneous
  Country: US (occurrence: US)
  Receive Date: 20130301
  Receipt Date: 20130301
  Transmission Date: 20140127
  Serious: No
  Sender: FDA-Public Use
  Company Number: US-BIOGENIDEC-2013BI016830

PATIENT
  Age: 32 Year
  Sex: Female

DRUGS (1)
  1. TYSABRI [Suspect]
     Indication: MULTIPLE SCLEROSIS
     Route: 042
     Dates: start: 20090605

REACTIONS (7)
  - Road traffic accident [Recovered/Resolved]
  - Gait disturbance [Not Recovered/Not Resolved]
  - Pain in extremity [Not Recovered/Not Resolved]
  - Muscle fatigue [Not Recovered/Not Resolved]
  - Multiple sclerosis [Not Recovered/Not Resolved]
  - Musculoskeletal pain [Not Recovered/Not Resolved]
  - Feeling abnormal [Not Recovered/Not Resolved]
